FAERS Safety Report 9301169 (Version 1)
Quarter: 2013Q2

REPORT INFORMATION
  Report Type: Spontaneous
  Country: US (occurrence: US)
  Receive Date: 20130521
  Receipt Date: 20130521
  Transmission Date: 20140414
  Serious: Yes (Hospitalization)
  Sender: FDA-Public Use
  Company Number: US-GLAXOSMITHKLINE-A1023429A

PATIENT
  Age: 70 Year
  Sex: Female

DRUGS (2)
  1. ADVAIR [Suspect]
     Indication: CHRONIC OBSTRUCTIVE PULMONARY DISEASE
     Dosage: 1PUFF TWICE PER DAY
     Route: 055
     Dates: start: 201112, end: 201205
  2. ALBUTEROL INHALER [Concomitant]

REACTIONS (4)
  - Dysphonia [Not Recovered/Not Resolved]
  - Dysphonia [Unknown]
  - Joint crepitation [Unknown]
  - Dyspnoea [Unknown]
